FAERS Safety Report 11417197 (Version 2)
Quarter: 2015Q3

REPORT INFORMATION
  Report Type: Spontaneous
  Country: US (occurrence: US)
  Receive Date: 20150825
  Receipt Date: 20150923
  Transmission Date: 20151125
  Serious: Yes (Other)
  Sender: FDA-Public Use
  Company Number: US-BAYER-2015-406276

PATIENT
  Age: 58 Year
  Sex: Male
  Weight: 72.11 kg

DRUGS (5)
  1. BAYER EXTRA STRENGTH ASPIRIN [Suspect]
     Active Substance: ASPIRIN
     Indication: ARTHRITIS
     Dosage: BY BREAKING THEM IN HALF AND WOULD TAKE THEM FOR ABOUT 3 DAYS
     Route: 048
  2. B VITAMIN COMP [B5,B3,B6,B2,B1 HCL] [Concomitant]
  3. BAYER GENUINE ASPIRIN [Suspect]
     Active Substance: ASPIRIN
     Route: 048
  4. FISH OIL [Concomitant]
     Active Substance: FISH OIL
  5. BAYER GENUINE ASPIRIN [Suspect]
     Active Substance: ASPIRIN
     Indication: ARTHRITIS
     Dosage: BREAKING ONE TABLET INTO QUARTERS AND INGESTING THEM WITH FOOD THROUGHOUT THE DAY
     Dates: start: 201507

REACTIONS (5)
  - Epistaxis [None]
  - Product use issue [None]
  - Drug ineffective [Unknown]
  - Haemorrhage [None]
  - Gastric ulcer haemorrhage [Unknown]

NARRATIVE: CASE EVENT DATE: 201507
